FAERS Safety Report 17129266 (Version 1)
Quarter: 2019Q4

REPORT INFORMATION
  Report Type: Spontaneous
  Country: US (occurrence: US)
  Receive Date: 20191209
  Receipt Date: 20191209
  Transmission Date: 20200122
  Serious: No
  Sender: FDA-Public Use
  Company Number: US-SEPTODONT-201905056

PATIENT
  Age: 5 Decade
  Sex: Female

DRUGS (3)
  1. LEVONORDEFRIN\MEPIVACAINE HYDROCHLORIDE [Suspect]
     Active Substance: LEVONORDEFRIN\MEPIVACAINE HYDROCHLORIDE
     Indication: DENTAL LOCAL ANAESTHESIA
     Route: 004
  2. LEVONORDEFRIN\MEPIVACAINE HYDROCHLORIDE [Suspect]
     Active Substance: LEVONORDEFRIN\MEPIVACAINE HYDROCHLORIDE
     Indication: DENTAL LOCAL ANAESTHESIA
     Route: 004
  3. LEVONORDEFRIN\MEPIVACAINE HYDROCHLORIDE [Suspect]
     Active Substance: LEVONORDEFRIN\MEPIVACAINE HYDROCHLORIDE
     Indication: DENTAL LOCAL ANAESTHESIA
     Route: 004

REACTIONS (1)
  - Drug ineffective [Not Recovered/Not Resolved]
